FAERS Safety Report 8802432 (Version 1)
Quarter: 2012Q4

REPORT INFORMATION
  Report Type: 
  Country: TH (occurrence: TH)
  Receive Date: 20120921
  Receipt Date: 20120921
  Transmission Date: 20130627
  Serious: Yes (Death)
  Sender: FDA-Public Use
  Company Number: PHHO2004TH12389

PATIENT
  Sex: Male

DRUGS (2)
  1. GLIVEC [Suspect]
     Indication: CHRONIC MYELOID LEUKAEMIA
     Dates: start: 20040331
  2. GLIVEC [Suspect]
     Dosage: 600 mg, QD
     Route: 048
     Dates: start: 200404

REACTIONS (1)
  - Death [Fatal]
